FAERS Safety Report 4696035-4 (Version None)
Quarter: 2005Q2

REPORT INFORMATION
  Report Type: 
  Country: None (occurrence: None)
  Receive Date: 20050621
  Receipt Date: 20050614
  Transmission Date: 20051028
  Serious: Yes (Other)
  Sender: FDA-Public Use
  Company Number: 406693

PATIENT
  Age: 26 Year
  Sex: Female

DRUGS (2)
  1. CARVEDILOL [Suspect]
     Route: 048
     Dates: start: 20041007, end: 20041102
  2. TENORMIN [Concomitant]
     Route: 065
     Dates: start: 20040907, end: 20041007

REACTIONS (3)
  - ABORTION MISSED [None]
  - ABORTION SPONTANEOUS [None]
  - INTRA-UTERINE DEATH [None]
